FAERS Safety Report 13368490 (Version 1)
Quarter: 2017Q1

REPORT INFORMATION
  Report Type: Spontaneous
  Country: US (occurrence: US)
  Receive Date: 20170324
  Receipt Date: 20170324
  Transmission Date: 20170429
  Serious: No
  Sender: FDA-Public Use
  Company Number: US-PFIZER INC-2017124434

PATIENT
  Age: 11 Year
  Sex: Female
  Weight: 30 kg

DRUGS (2)
  1. TYLENOL WITH CODEINE [Concomitant]
     Active Substance: ACETAMINOPHEN\CODEINE PHOSPHATE
     Indication: MUSCULOSKELETAL CHEST PAIN
     Dosage: UNK
  2. CELECOXIB. [Suspect]
     Active Substance: CELECOXIB
     Indication: MUSCULOSKELETAL CHEST PAIN
     Dosage: 100 MG, 2X/DAY (MORNING AND EVENING)
     Dates: start: 201612, end: 201702

REACTIONS (2)
  - Drug ineffective [Unknown]
  - Drug administered to patient of inappropriate age [Unknown]

NARRATIVE: CASE EVENT DATE: 20161225
